FAERS Safety Report 10430447 (Version 1)
Quarter: 2014Q3

REPORT INFORMATION
  Report Type: Spontaneous
  Country: US (occurrence: None)
  Receive Date: 20140903
  Receipt Date: 20140903
  Transmission Date: 20150326
  Serious: No
  Sender: FDA-Public Use
  Company Number: None

PATIENT
  Age: 30 Year
  Sex: Female
  Weight: 64.41 kg

DRUGS (1)
  1. LEVAQUIN [Suspect]
     Active Substance: LEVOFLOXACIN
     Indication: SINUSITIS
     Dosage: 1 PILL
     Route: 048
     Dates: start: 20140829, end: 20140831

REACTIONS (5)
  - Tendon pain [None]
  - Dyspnoea [None]
  - Fatigue [None]
  - Upper-airway cough syndrome [None]
  - Respiratory tract congestion [None]

NARRATIVE: CASE EVENT DATE: 20140901
